FAERS Safety Report 6642529-1 (Version None)
Quarter: 2010Q1

REPORT INFORMATION
  Report Type: 
  Country: None (occurrence: None)
  Receive Date: 20100316
  Receipt Date: 20100301
  Transmission Date: 20100710
  Serious: Yes (Hospitalization)
  Sender: FDA-Public Use
  Company Number: 008375

PATIENT
  Sex: Female

DRUGS (2)
  1. CIMZIA [Suspect]
     Indication: CROHN'S DISEASE
     Dosage: (SUBCUTANEOUS), (SUBCUTANEOUS)
     Route: 058
     Dates: start: 20090901
  2. CIMZIA [Suspect]
     Indication: RHEUMATOID ARTHRITIS
     Dosage: (SUBCUTANEOUS), (SUBCUTANEOUS)
     Route: 058
     Dates: start: 20090901

REACTIONS (10)
  - ALOPECIA [None]
  - BLOOD PRESSURE INCREASED [None]
  - INJECTION SITE PAIN [None]
  - NAUSEA [None]
  - OEDEMA PERIPHERAL [None]
  - PAIN IN EXTREMITY [None]
  - PRURITUS [None]
  - RASH MACULO-PAPULAR [None]
  - RHINALGIA [None]
  - URTICARIA [None]
